FAERS Safety Report 5785903-8 (Version None)
Quarter: 2008Q2

REPORT INFORMATION
  Report Type: 
  Country: None (occurrence: None)
  Receive Date: 20080624
  Receipt Date: 20080617
  Transmission Date: 20081010
  Serious: Yes (Hospitalization)
  Sender: FDA-Public Use
  Company Number: US-AMGEN-QUU287772

PATIENT
  Sex: Male

DRUGS (5)
  1. NEUPOGEN [Suspect]
     Indication: DRUG USE FOR UNKNOWN INDICATION
     Dates: start: 20071201
  2. CREON [Concomitant]
  3. PRILOSEC [Concomitant]
  4. CIPRO [Concomitant]
  5. CLINDAMYCIN HCL [Concomitant]

REACTIONS (3)
  - LABORATORY TEST ABNORMAL [None]
  - NEUTROPENIA [None]
  - PSEUDOMONAS INFECTION [None]
